FAERS Safety Report 4979887-X (Version None)
Quarter: 2006Q2

REPORT INFORMATION
  Report Type: 
  Country: None (occurrence: None)
  Receive Date: 20060421
  Receipt Date: 20050308
  Transmission Date: 20061013
  Serious: Yes (Hospitalization, Other)
  Sender: FDA-Public Use
  Company Number: US-MERCK-0503USA01343

PATIENT
  Age: 71 Year
  Sex: Female
  Weight: 85 kg

DRUGS (2)
  1. VIOXX [Suspect]
     Indication: ARTHRITIS
     Route: 048
     Dates: start: 20010101
  2. VIOXX [Suspect]
     Route: 048
     Dates: start: 20020517, end: 20020523

REACTIONS (27)
  - ABDOMINAL PAIN UPPER [None]
  - ANGINA PECTORIS [None]
  - ATRIAL FIBRILLATION [None]
  - BACK INJURY [None]
  - CATARACT [None]
  - CEREBROVASCULAR ACCIDENT [None]
  - CERVIX DISORDER [None]
  - CHEST PAIN [None]
  - CHOLECYSTITIS CHRONIC [None]
  - CHONDROMALACIA [None]
  - CYSTOCELE [None]
  - DYSPNOEA [None]
  - EAR PAIN [None]
  - EYE DISORDER [None]
  - FALL [None]
  - HEADACHE [None]
  - HIATUS HERNIA [None]
  - HYPERGLYCAEMIA [None]
  - JOINT DISLOCATION [None]
  - LUMBAR RADICULOPATHY [None]
  - OSTEOARTHRITIS [None]
  - PAIN [None]
  - RECTOCELE [None]
  - SINUS BRADYCARDIA [None]
  - STRESS INCONTINENCE [None]
  - TRANSIENT ISCHAEMIC ATTACK [None]
  - UTERINE PROLAPSE [None]
